FAERS Safety Report 13292776 (Version 8)
Quarter: 2017Q3

REPORT INFORMATION
  Report Type: Spontaneous
  Country: US (occurrence: US)
  Receive Date: 20170303
  Receipt Date: 20170901
  Transmission Date: 20171127
  Serious: Yes (Hospitalization, Congenital Anomaly, Other)
  Sender: FDA-Public Use
  Company Number: PHEH2017US006397

PATIENT
  Sex: Male

DRUGS (3)
  1. ZOFRAN ODT [Suspect]
     Active Substance: ONDANSETRON HYDROCHLORIDE
     Indication: FOETAL EXPOSURE DURING PREGNANCY
     Dosage: MOTHER DOSE: 01 DF, BID
     Route: 064
  2. ZOFRAN [Suspect]
     Active Substance: ONDANSETRON HYDROCHLORIDE
     Indication: FOETAL EXPOSURE DURING PREGNANCY
     Route: 064
  3. ONDANSETRON TEVA [Suspect]
     Active Substance: ONDANSETRON
     Indication: FOETAL EXPOSURE DURING PREGNANCY
     Dosage: MOTHER^S DOSE: 08 MG, BID
     Route: 064

REACTIONS (51)
  - Diarrhoea neonatal [Unknown]
  - Cough [Unknown]
  - Gingival oedema [Unknown]
  - Developmental delay [Unknown]
  - Testicular retraction [Unknown]
  - Pharyngitis streptococcal [Unknown]
  - Neonatal respiratory distress syndrome [Unknown]
  - Jaundice neonatal [Unknown]
  - Gastrooesophageal reflux disease [Unknown]
  - Stomatitis [Unknown]
  - Use of accessory respiratory muscles [Unknown]
  - Cardiac malposition [Unknown]
  - Atrial septal defect [Unknown]
  - Respiratory syncytial virus infection [Unknown]
  - Eustachian tube dysfunction [Unknown]
  - Sepsis neonatal [Unknown]
  - Bronchiolitis [Unknown]
  - Loss of consciousness [Unknown]
  - Foetal exposure during pregnancy [Unknown]
  - Conjunctivitis [Unknown]
  - Upper respiratory tract infection [Unknown]
  - Back pain [Unknown]
  - Eyelid oedema [Unknown]
  - Rash [Unknown]
  - Laryngeal obstruction [Unknown]
  - Cardiac murmur [Unknown]
  - Ear infection [Unknown]
  - Bronchospasm [Unknown]
  - Teething [Unknown]
  - Speech disorder [Unknown]
  - Urinary tract infection [Unknown]
  - Syncope [Unknown]
  - Fever neonatal [Unknown]
  - Ear pain [Unknown]
  - Wheezing [Unknown]
  - Cerumen impaction [Unknown]
  - Dextrocardia [Unknown]
  - Hypoglycaemia neonatal [Unknown]
  - Eczema [Unknown]
  - Otitis media acute [Unknown]
  - Bronchitis [Unknown]
  - Rhinorrhoea [Unknown]
  - Arthralgia [Unknown]
  - Abdominal distension [Unknown]
  - Congenital inguinal hernia [Unknown]
  - Heart disease congenital [Unknown]
  - Transient tachypnoea of the newborn [Unknown]
  - Injury [Unknown]
  - Heart rate irregular [Recovered/Resolved]
  - Penile adhesion [Unknown]
  - Nasal congestion [Unknown]
